FAERS Safety Report 8415091-0 (Version None)
Quarter: 2012Q2

REPORT INFORMATION
  Report Type: 
  Country: None (occurrence: None)
  Receive Date: 20120606
  Receipt Date: 20120528
  Transmission Date: 20120825
  Serious: Yes (Hospitalization)
  Sender: FDA-Public Use
  Company Number: JP-VERTEX PHARMACEUTICALS INC.-AE-2012-007664

PATIENT
  Age: 64 Year
  Sex: Female

DRUGS (11)
  1. REBETOL [Concomitant]
     Route: 048
     Dates: start: 20120410, end: 20120501
  2. ROHYPNOL [Concomitant]
     Route: 048
     Dates: end: 20120430
  3. MAGMITT [Concomitant]
     Route: 048
     Dates: start: 20120403
  4. TELAVIC (TELAPREVIR) [Suspect]
     Indication: HEPATITIS C
     Route: 048
     Dates: start: 20120403, end: 20120406
  5. TELAVIC (TELAPREVIR) [Suspect]
     Route: 048
     Dates: start: 20120417
  6. SELBEX [Concomitant]
     Route: 048
     Dates: start: 20120403
  7. LOXOPROFEN [Concomitant]
     Route: 048
     Dates: start: 20120403
  8. REBETOL [Concomitant]
     Indication: HEPATITIS C
     Route: 048
     Dates: start: 20120403, end: 20120406
  9. REBETOL [Concomitant]
     Route: 048
     Dates: start: 20120502
  10. PEG-INTRON [Concomitant]
     Indication: HEPATITIS C
     Route: 058
     Dates: start: 20120403
  11. URSO 250 [Concomitant]
     Route: 048
     Dates: end: 20120408

REACTIONS (1)
  - ASCITES [None]
